FAERS Safety Report 18838104 (Version 1)
Quarter: 2021Q1

REPORT INFORMATION
  Report Type: Spontaneous
  Country: US (occurrence: US)
  Receive Date: 20210203
  Receipt Date: 20210203
  Transmission Date: 20210419
  Serious: No
  Sender: FDA-Public Use
  Company Number: US-ALLERGAN-2040688US

PATIENT
  Age: 35 Year
  Sex: Female

DRUGS (3)
  1. BOTOX COSMETIC [Suspect]
     Active Substance: ONABOTULINUMTOXINA
     Indication: PRODUCT USED FOR UNKNOWN INDICATION
     Dosage: 30?40 UNITS, SINGLE
     Dates: start: 2020, end: 2020
  2. DYSPORT [Concomitant]
     Active Substance: ABOBOTULINUMTOXINA
  3. XEOMIN [Concomitant]
     Active Substance: INCOBOTULINUMTOXINA

REACTIONS (1)
  - Drug ineffective [Unknown]
